FAERS Safety Report 7137712-5 (Version None)
Quarter: 2010Q4

REPORT INFORMATION
  Report Type: 
  Country: None (occurrence: None)
  Receive Date: 20101119
  Receipt Date: 20101104
  Transmission Date: 20110411
  Serious: Yes (Other)
  Sender: FDA-Public Use
  Company Number: 019779

PATIENT
  Sex: Female

DRUGS (5)
  1. KEPPRA [Suspect]
     Indication: EPILEPSY
     Dosage: (2000 MG) (2500 MG)
     Dates: start: 20100101
  2. KEPPRA [Suspect]
     Indication: EPILEPSY
     Dosage: (2000 MG) (2500 MG)
     Dates: start: 20100101
  3. FOLIC ACID [Concomitant]
  4. FROVA [Concomitant]
  5. PRENATAL VITAMINS /01549301/ [Concomitant]

REACTIONS (15)
  - AMNIOTIC FLUID VOLUME DECREASED [None]
  - CAESAREAN SECTION [None]
  - CONVULSION [None]
  - DRUG EXPOSURE DURING PREGNANCY [None]
  - INDUCED LABOUR [None]
  - INSOMNIA [None]
  - IRRITABLE BOWEL SYNDROME [None]
  - LYMPHOCYTE PERCENTAGE DECREASED [None]
  - NEUTROPHIL COUNT INCREASED [None]
  - NEUTROPHIL PERCENTAGE INCREASED [None]
  - OVARIAN CYST [None]
  - PAIN [None]
  - PREGNANCY [None]
  - STREPTOCOCCAL INFECTION [None]
  - WHITE BLOOD CELL COUNT INCREASED [None]
